FAERS Safety Report 9054639 (Version 3)
Quarter: 2013Q1

REPORT INFORMATION
  Report Type: Other
  Country: JP (occurrence: JP)
  Receive Date: 20130208
  Receipt Date: 20130315
  Transmission Date: 20140127
  Serious: Yes (Other)
  Sender: FDA-Public Use
  Company Number: JP-BRISTOL-MYERS SQUIBB COMPANY-17363359

PATIENT
  Age: 60 Year
  Sex: Male

DRUGS (10)
  1. ERBITUX SOLN FOR INF 5MG/ML [Suspect]
     Indication: RECTAL CANCER RECURRENT
     Dosage: 1 DF: 5MG/ML
     Route: 041
     Dates: start: 20110726, end: 20111025
  2. IRINOTECAN [Suspect]
     Indication: RECTAL CANCER RECURRENT
     Route: 041
     Dates: start: 20110726, end: 20111025
  3. KRESTIN [Concomitant]
     Indication: RECTAL CANCER RECURRENT
     Route: 048
  4. AMOBAN [Concomitant]
     Indication: INSOMNIA
     Route: 048
  5. GASTER D [Concomitant]
     Indication: GASTRITIS
     Route: 048
  6. OXYCONTIN [Concomitant]
     Indication: PAIN
     Route: 048
  7. LOXOPROFEN [Concomitant]
     Indication: PAIN
     Route: 048
  8. MUCOSTA [Concomitant]
     Indication: GASTRITIS
     Route: 048
  9. RIMATIL [Concomitant]
     Indication: RHEUMATOID ARTHRITIS
     Route: 048
  10. MAINTATE [Concomitant]
     Indication: HYPERTENSION
     Route: 048

REACTIONS (2)
  - Pyoderma gangrenosum [Recovering/Resolving]
  - Infection [Recovering/Resolving]
